FAERS Safety Report 7992843-2 (Version None)
Quarter: 2011Q4

REPORT INFORMATION
  Report Type: 
  Country: None (occurrence: None)
  Receive Date: 20111219
  Receipt Date: 20110418
  Transmission Date: 20120403
  Serious: No
  Sender: FDA-Public Use
  Company Number: US-ASTRAZENECA-2011SE22043

PATIENT
  Age: 55 Year
  Sex: Female

DRUGS (16)
  1. CRESTOR [Suspect]
     Indication: BLOOD CHOLESTEROL ABNORMAL
     Route: 048
     Dates: start: 20100101
  2. HYDROXYCHLORIDE [Concomitant]
  3. BUSPIRONE HCL [Concomitant]
  4. THEOPHYLLINE [Concomitant]
  5. IBUPROFEN [Concomitant]
  6. PROMETHAZINE [Concomitant]
  7. LISINOPRIL [Concomitant]
  8. HYDROPLAQUENIL [Concomitant]
  9. PLAVIX [Concomitant]
  10. OMEPRAZOLE [Concomitant]
  11. LANTUS [Concomitant]
  12. PREGABALIN [Concomitant]
  13. ASPIRIN [Concomitant]
  14. ROPINIROLE [Concomitant]
  15. BUPROPION HYDROCHLORIDE [Concomitant]
  16. ESTRADIOL [Concomitant]

REACTIONS (4)
  - CONTUSION [None]
  - COUGH [None]
  - VISION BLURRED [None]
  - BLOOD GLUCOSE ABNORMAL [None]
